FAERS Safety Report 9945536 (Version 1)
Quarter: 2014Q1

REPORT INFORMATION
  Report Type: Report from Study
  Country: US (occurrence: US)
  Receive Date: 20140303
  Receipt Date: 20140303
  Transmission Date: 20141002
  Serious: No
  Sender: FDA-Public Use
  Company Number: US-ABBVIE-13P-163-1056539-00

PATIENT
  Age: 72 Year
  Sex: Male
  Weight: 74.46 kg

DRUGS (7)
  1. HUMIRA [Suspect]
     Indication: CROHN^S DISEASE
  2. LASIX [Concomitant]
     Indication: FLUID RETENTION
  3. ATENOLOL [Concomitant]
     Indication: HYPERTENSION
  4. ATENOLOL [Concomitant]
     Indication: PALPITATIONS
  5. UNNAMED MEDICATION [Concomitant]
     Indication: GASTROOESOPHAGEAL REFLUX PROPHYLAXIS
  6. ALIGN PROBIOTIC [Concomitant]
     Indication: SUPPLEMENTATION THERAPY
  7. IRON [Concomitant]
     Indication: IRON DEFICIENCY

REACTIONS (5)
  - Pain in extremity [Not Recovered/Not Resolved]
  - Gout [Not Recovered/Not Resolved]
  - Pain [Not Recovered/Not Resolved]
  - Pain in extremity [Not Recovered/Not Resolved]
  - Local swelling [Not Recovered/Not Resolved]
